FAERS Safety Report 6583550-1 (Version None)
Quarter: 2010Q1

REPORT INFORMATION
  Report Type: 
  Country: None (occurrence: None)
  Receive Date: 20100216
  Receipt Date: 20100204
  Transmission Date: 20100710
  Serious: Yes (Other)
  Sender: FDA-Public Use
  Company Number: US-WYE-H13363410

PATIENT
  Age: 59 Year
  Sex: Male

DRUGS (2)
  1. PRISTIQ [Suspect]
     Indication: DEPRESSION
     Route: 048
  2. TRAZODONE [Concomitant]
     Dosage: UNKNOWN

REACTIONS (1)
  - SUICIDAL IDEATION [None]
